FAERS Safety Report 9815418 (Version 3)
Quarter: 2014Q1

REPORT INFORMATION
  Report Type: Spontaneous
  Country: US (occurrence: US)
  Receive Date: 20140114
  Receipt Date: 20140203
  Transmission Date: 20141002
  Serious: Yes (Hospitalization, Other)
  Sender: FDA-Public Use
  Company Number: US-INCYTE CORPORATION-2013IN002947

PATIENT
  Age: 63 Year
  Sex: Female
  Weight: 74.38 kg

DRUGS (5)
  1. JAKAFI [Suspect]
     Indication: MYELOFIBROSIS
     Dosage: 5 MG, BID
     Route: 048
     Dates: start: 20131023, end: 20131227
  2. ACYCLOVIR                          /00587301/ [Concomitant]
  3. LORAZEPAM [Concomitant]
  4. CYANOCOBALAMIN [Concomitant]
  5. VORICONAZOLE [Concomitant]

REACTIONS (2)
  - Acute leukaemia [Recovering/Resolving]
  - Anaemia [Recovering/Resolving]
